FAERS Safety Report 19742022 (Version 1)
Quarter: 2021Q3

REPORT INFORMATION
  Report Type: Spontaneous
  Country: JP (occurrence: JP)
  Receive Date: 20210825
  Receipt Date: 20210825
  Transmission Date: 20211014
  Serious: Yes (Hospitalization, Other)
  Sender: FDA-Public Use
  Company Number: NVSJ2021JP012305

PATIENT
  Age: 53 Year
  Sex: Female

DRUGS (1)
  1. ENTRESTO [Suspect]
     Active Substance: SACUBITRIL\VALSARTAN
     Indication: PRODUCT USED FOR UNKNOWN INDICATION
     Dosage: 200 MG
     Route: 048

REACTIONS (4)
  - Pain in extremity [Unknown]
  - Haematoma muscle [Recovering/Resolving]
  - Hypertension [Unknown]
  - Weight increased [Unknown]

NARRATIVE: CASE EVENT DATE: 20210809
